FAERS Safety Report 21342210 (Version 4)
Quarter: 2023Q1

REPORT INFORMATION
  Report Type: Spontaneous
  Country: IN (occurrence: IN)
  Receive Date: 20220916
  Receipt Date: 20230321
  Transmission Date: 20230417
  Serious: Yes (Other)
  Sender: FDA-Public Use
  Company Number: IN-PFIZER INC-PV202200010645

PATIENT
  Age: 41 Year
  Sex: Female
  Weight: 62.4 kg

DRUGS (2)
  1. LORLATINIB [Suspect]
     Active Substance: LORLATINIB
     Indication: Lung adenocarcinoma
     Dosage: 100 MG, 1X/DAY
     Route: 048
     Dates: start: 20201104, end: 20220529
  2. LORLATINIB [Suspect]
     Active Substance: LORLATINIB
     Dosage: 100 MG, 1X/DAY
     Route: 048

REACTIONS (23)
  - Electrocardiogram QT interval abnormal [Unknown]
  - Blood triglycerides increased [Recovering/Resolving]
  - High density lipoprotein decreased [Recovering/Resolving]
  - Very low density lipoprotein increased [Recovering/Resolving]
  - Total cholesterol/HDL ratio decreased [Recovering/Resolving]
  - Malaise [Unknown]
  - Globulins decreased [Unknown]
  - Pain of skin [Unknown]
  - Alopecia [Unknown]
  - Dyslipidaemia [Unknown]
  - Body mass index increased [Recovering/Resolving]
  - Blood cholesterol increased [Recovering/Resolving]
  - Low density lipoprotein increased [Recovering/Resolving]
  - Body temperature decreased [Unknown]
  - Alanine aminotransferase increased [Unknown]
  - Albumin globulin ratio increased [Unknown]
  - Blood albumin increased [Unknown]
  - Blood alkaline phosphatase increased [Recovering/Resolving]
  - Blood bilirubin decreased [Unknown]
  - Blood creatinine decreased [Recovering/Resolving]
  - Gamma-glutamyltransferase decreased [Unknown]
  - Blood glucose increased [Unknown]
  - Weight decreased [Unknown]

NARRATIVE: CASE EVENT DATE: 20220609
